FAERS Safety Report 7531467-8 (Version None)
Quarter: 2011Q2

REPORT INFORMATION
  Report Type: 
  Country: None (occurrence: None)
  Receive Date: 20110531
  Receipt Date: 20110516
  Transmission Date: 20111010
  Serious: Yes (Hospitalization, Other)
  Sender: FDA-Public Use
  Company Number: AUR-APL-2011-01652

PATIENT
  Age: 42 Year
  Sex: Male

DRUGS (10)
  1. ATORVASTATIN [Suspect]
     Indication: DYSLIPIDAEMIA
  2. ASPIRIN [Suspect]
     Indication: DEEP VEIN THROMBOSIS
  3. FENOFIBRATE [Suspect]
     Indication: DYSLIPIDAEMIA
  4. WARFARIN SODIUM [Suspect]
     Indication: DEEP VEIN THROMBOSIS
  5. QUETIAPINE [Suspect]
     Indication: DEPRESSION
  6. QUETIAPINE [Suspect]
     Indication: SCHIZOPHRENIA
  7. DICLOFENAC SODIUM [Suspect]
     Indication: PAIN IN EXTREMITY
  8. CITALOPRAM HYDROBROMIDE [Suspect]
     Indication: DEPRESSION
  9. CITALOPRAM HYDROBROMIDE [Suspect]
     Indication: SCHIZOPHRENIA
  10. PROPRANOLOL [Suspect]

REACTIONS (16)
  - MYALGIA [None]
  - MELAENA [None]
  - RADICULAR PAIN [None]
  - SKIN HAEMORRHAGE [None]
  - URINARY RETENTION [None]
  - SPINAL CORD COMPRESSION [None]
  - EXTRADURAL HAEMATOMA [None]
  - BACK PAIN [None]
  - MUCOSAL HAEMORRHAGE [None]
  - ARTHRALGIA [None]
  - HYPOVOLAEMIC SHOCK [None]
  - PARAPARESIS [None]
  - LOSS OF BLADDER SENSATION [None]
  - AREFLEXIA [None]
  - VESSEL PUNCTURE SITE HAEMORRHAGE [None]
  - DRUG INTERACTION [None]
